FAERS Safety Report 8223058-0 (Version None)
Quarter: 2012Q1

REPORT INFORMATION
  Report Type: 
  Country: None (occurrence: None)
  Receive Date: 20120321
  Receipt Date: 20120312
  Transmission Date: 20120608
  Serious: Yes (Hospitalization)
  Sender: FDA-Public Use
  Company Number: FR-BRISTOL-MYERS SQUIBB COMPANY-16462046

PATIENT

DRUGS (4)
  1. CISPLATIN [Suspect]
     Indication: PHARYNGEAL CANCER STAGE UNSPECIFIED
     Dosage: 1 DF: 20 % DOSE REDUCED
  2. CETUXIMAB [Suspect]
     Indication: PHARYNGEAL CANCER STAGE UNSPECIFIED
     Dosage: 1 DF: 20 % DOSE REDUCED
  3. FLUOROURACIL [Suspect]
     Indication: PHARYNGEAL CANCER STAGE UNSPECIFIED
     Dosage: 1 DF: 20 % DOSE REDUCED
  4. DOCETAXEL [Suspect]
     Indication: PHARYNGEAL CANCER STAGE UNSPECIFIED
     Dosage: 1 DF: 20 % DOSE REDUCED

REACTIONS (1)
  - ORTHOSTATIC HYPOTENSION [None]
